FAERS Safety Report 8964503 (Version 1)
Quarter: 2012Q4

REPORT INFORMATION
  Report Type: 
  Country: AU (occurrence: AU)
  Receive Date: 20121214
  Receipt Date: 20121214
  Transmission Date: 20130627
  Serious: Yes (Hospitalization, Other)
  Sender: FDA-Public Use
  Company Number: AU-009507513-1209AUS004640

PATIENT
  Age: 59 Year
  Sex: Male
  Weight: 73 kg

DRUGS (9)
  1. VICTRELIS 200 MG [Suspect]
     Dosage: UNK
     Route: 048
  2. RIBAVIRIN [Suspect]
     Dosage: UNK
     Route: 048
     Dates: start: 20120803
  3. RIBAVIRIN [Suspect]
     Dosage: 800 mg, qd
     Dates: start: 20120803
  4. RIBAVIRIN [Suspect]
     Dosage: 600 mg, qd
     Dates: start: 20120817
  5. PEGASYS [Suspect]
     Dosage: 180/140 units not specified
     Dates: start: 20120622, end: 20120907
  6. VASOCARDOL [Concomitant]
     Dosage: UNK
  7. QUINAPRIL HYDROCHLORIDE [Concomitant]
     Dosage: UNK
  8. IRBESARTAN [Concomitant]
     Dosage: UNK
  9. OXAZEPAM [Concomitant]

REACTIONS (7)
  - Anaemia [Recovering/Resolving]
  - Activities of daily living impaired [Unknown]
  - Malaise [Unknown]
  - Urinary retention [Unknown]
  - Constipation [Unknown]
  - Decreased appetite [Unknown]
  - Diarrhoea [Unknown]
